FAERS Safety Report 10249411 (Version 1)
Quarter: 2014Q2

REPORT INFORMATION
  Report Type: Spontaneous
  Country: US (occurrence: None)
  Receive Date: 20140530
  Receipt Date: 20140530
  Transmission Date: 20141212
  Serious: Yes (Other)
  Sender: FDA-Public Use
  Company Number: M-13-017

PATIENT
  Age: 71 Year
  Sex: Female

DRUGS (7)
  1. PHENTERMINE [Suspect]
     Indication: WEIGHT DECREASED
  2. CRESTOR [Concomitant]
  3. METOPROLOL [Concomitant]
  4. CITALOPRAM [Concomitant]
  5. VITAMIN C [Concomitant]
  6. VITAMIN D3 [Concomitant]
  7. COQ10 [Concomitant]

REACTIONS (3)
  - Drug ineffective [None]
  - Weight decreased [None]
  - Product quality issue [None]
